FAERS Safety Report 4749216-5 (Version None)
Quarter: 2005Q3

REPORT INFORMATION
  Report Type: 
  Country: None (occurrence: None)
  Receive Date: 20050817
  Receipt Date: 20050309
  Transmission Date: 20060218
  Serious: Yes (Hospitalization, Disabling)
  Sender: FDA-Public Use
  Company Number: 2005-00024FE

PATIENT
  Age: 35 Year
  Sex: Female

DRUGS (5)
  1. MENOTROPINS [Suspect]
     Indication: INFERTILITY
     Dosage: 500 IU, INTRA-MUSCULAR
     Route: 030
     Dates: start: 20040501, end: 20040501
  2. MENOTROPINS [Suspect]
     Indication: INFERTILITY
     Dosage: 500 IU, INTRA-MUSCULAR
     Route: 030
     Dates: start: 20040901, end: 20040901
  3. DECAPEPTYL (DECAPEPTYL/SCH) (TRIPTORELIN ACETATE) [Suspect]
     Indication: INFERTILITY
     Dosage: 0.1 MG, SUBCUTANEOUSLY
     Route: 058
     Dates: start: 20040201, end: 20040201
  4. DECAPEPTYL (DECAPEPTYL/SCH) (TRIPTORELIN ACETATE) [Suspect]
     Indication: INFERTILITY
     Dosage: 0.1 MG, SUBCUTANEOUSLY
     Route: 058
     Dates: start: 20040501, end: 20040501
  5. GONAL-F (GONAL-F) (FOLLITROPIN ALFA) [Suspect]
     Indication: INFERTILITY
     Dosage: 450 IU, INTRA-MUSCULAR
     Route: 030
     Dates: start: 20040201, end: 20040201

REACTIONS (13)
  - BALANCE DISORDER [None]
  - CEREBELLAR SYNDROME [None]
  - CLONUS [None]
  - EXTENSOR PLANTAR RESPONSE [None]
  - HEMIPARESIS [None]
  - HOFFMANN'S SIGN [None]
  - HYPERREFLEXIA [None]
  - MUSCLE CONTRACTIONS INVOLUNTARY [None]
  - QUADRIPARESIS [None]
  - SOMATOSENSORY EVOKED POTENTIALS ABNORMAL [None]
  - VERTIGO [None]
  - VISUAL EVOKED POTENTIALS ABNORMAL [None]
  - WEIGHT DECREASED [None]
